FAERS Safety Report 4554816-1 (Version None)
Quarter: 2005Q1

REPORT INFORMATION
  Report Type: 
  Country: None (occurrence: None)
  Receive Date: 20050114
  Receipt Date: 20040102
  Transmission Date: 20050727
  Serious: Yes (Hospitalization)
  Sender: FDA-Public Use
  Company Number: GXKR2004FR00533

PATIENT
  Age: 75 Year
  Sex: Female

DRUGS (3)
  1. ALLOPURINOL [Suspect]
     Dates: end: 20031201
  2. TEGRETOL [Concomitant]
  3. ALDOMET [Concomitant]

REACTIONS (5)
  - ALANINE AMINOTRANSFERASE INCREASED [None]
  - ASPARTATE AMINOTRANSFERASE INCREASED [None]
  - DERMATITIS EXFOLIATIVE [None]
  - HEPATIC ENZYME INCREASED [None]
  - TOXIC SKIN ERUPTION [None]
